FAERS Safety Report 20899403 (Version 1)
Quarter: 2022Q2

REPORT INFORMATION
  Report Type: Spontaneous
  Country: US (occurrence: US)
  Receive Date: 20220601
  Receipt Date: 20220601
  Transmission Date: 20220721
  Serious: Yes (Life-Threatening, Hospitalization)
  Sender: FDA-Public Use
  Company Number: US-BRISTOL-MYERS SQUIBB COMPANY-2022-044608

PATIENT
  Age: 77 Year
  Sex: Female
  Weight: 60.33 kg

DRUGS (1)
  1. REVLIMID [Suspect]
     Active Substance: LENALIDOMIDE
     Indication: Myelodysplastic syndrome
     Dosage: 3W ON 1W OFF
     Route: 048
     Dates: start: 20210625, end: 20220501

REACTIONS (2)
  - Hospitalisation [Not Recovered/Not Resolved]
  - Off label use [Unknown]
